FAERS Safety Report 21611029 (Version 2)
Quarter: 2022Q4

REPORT INFORMATION
  Report Type: Report from Study
  Country: US (occurrence: US)
  Receive Date: 20221117
  Receipt Date: 20221120
  Transmission Date: 20230113
  Serious: No
  Sender: FDA-Public Use
  Company Number: US-002147023-NVSC2022US258818

PATIENT

DRUGS (1)
  1. ENTRESTO [Suspect]
     Active Substance: SACUBITRIL\VALSARTAN
     Indication: Cardiac failure congestive
     Dosage: 1 DOSAGE FORM, BID (24/26 MG)
     Route: 065

REACTIONS (3)
  - Dysgraphia [Unknown]
  - Nerve injury [Unknown]
  - Condition aggravated [Unknown]

NARRATIVE: CASE EVENT DATE: 20200101
